FAERS Safety Report 7392524-2 (Version None)
Quarter: 2011Q2

REPORT INFORMATION
  Report Type: 
  Country: None (occurrence: None)
  Receive Date: 20110404
  Receipt Date: 20110325
  Transmission Date: 20111010
  Serious: Yes (Other)
  Sender: FDA-Public Use
  Company Number: US-ASTRAZENECA-2011SE17583

PATIENT
  Age: 68 Year
  Sex: Male

DRUGS (6)
  1. CITALOPRAM HYDROBROMIDE [Concomitant]
  2. INFLIXIMAB [Concomitant]
     Indication: CROHN'S DISEASE
  3. WARFARIN SODIUM [Concomitant]
  4. DIGOXIN [Concomitant]
  5. BUDESONIDE ORAL [Suspect]
     Indication: CROHN'S DISEASE
     Route: 048
  6. BUDESONIDE ORAL [Suspect]
     Route: 048

REACTIONS (2)
  - ADRENAL INSUFFICIENCY [None]
  - HYPOVOLAEMIC SHOCK [None]
